FAERS Safety Report 11985694 (Version 1)
Quarter: 2016Q1

REPORT INFORMATION
  Report Type: Report from Study
  Country: US (occurrence: US)
  Receive Date: 20160201
  Receipt Date: 20160201
  Transmission Date: 20160526
  Serious: No
  Sender: FDA-Public Use
  Company Number: US-ABBVIE-12P-163-0976676-00

PATIENT
  Age: 23 Year
  Sex: Male

DRUGS (3)
  1. HUMIRA [Suspect]
     Active Substance: ADALIMUMAB
     Route: 058
     Dates: start: 201501
  2. HUMIRA [Suspect]
     Active Substance: ADALIMUMAB
     Route: 058
     Dates: start: 2014, end: 201501
  3. HUMIRA [Suspect]
     Active Substance: ADALIMUMAB
     Indication: CROHN^S DISEASE
     Dosage: 80MG LOADING DOSE DAY 15
     Route: 058
     Dates: start: 20120724, end: 2014

REACTIONS (9)
  - Frequent bowel movements [Not Recovered/Not Resolved]
  - Medication error [Not Recovered/Not Resolved]
  - Psoriasis [Not Recovered/Not Resolved]
  - Abdominal distension [Recovered/Resolved]
  - Muscle spasms [Unknown]
  - Flatulence [Recovered/Resolved]
  - Crohn^s disease [Recovered/Resolved]
  - Folliculitis [Not Recovered/Not Resolved]
  - Constipation [Recovered/Resolved]

NARRATIVE: CASE EVENT DATE: 201207
